FAERS Safety Report 5980213-8 (Version None)
Quarter: 2008Q4

REPORT INFORMATION
  Report Type: 
  Country: None (occurrence: None)
  Receive Date: 20081202
  Receipt Date: 20081202
  Transmission Date: 20090506
  Serious: Yes (Other)
  Sender: FDA-Public Use
  Company Number: None

PATIENT
  Sex: Female
  Weight: 49.6 kg

DRUGS (1)
  1. MELPHALAN [Suspect]
     Indication: STEM CELL TRANSPLANT
     Dosage: 240 MG/M2 ONCE IV BOLUS
     Route: 040
     Dates: start: 20080420, end: 20080420

REACTIONS (2)
  - BRONCHIOLITIS [None]
  - STEM CELL TRANSPLANT [None]
